FAERS Safety Report 11631613 (Version 4)
Quarter: 2015Q4

REPORT INFORMATION
  Report Type: Report from Study
  Country: US (occurrence: US)
  Receive Date: 20151015
  Receipt Date: 20151112
  Transmission Date: 20160304
  Serious: No
  Sender: FDA-Public Use
  Company Number: US-AMGEN-USASL2015106808

PATIENT
  Age: 53 Year
  Sex: Female

DRUGS (1)
  1. ENBREL [Suspect]
     Active Substance: ETANERCEPT
     Indication: RHEUMATOID ARTHRITIS
     Dosage: 50 MG, QWK
     Route: 065
     Dates: start: 20151012

REACTIONS (6)
  - Fungal infection [Recovered/Resolved]
  - Dizziness [Unknown]
  - Injection site pain [Unknown]
  - Hyperventilation [Unknown]
  - Injection site extravasation [Unknown]
  - Sinusitis [Unknown]

NARRATIVE: CASE EVENT DATE: 201510
